FAERS Safety Report 8695409 (Version 3)
Quarter: 2013Q4

REPORT INFORMATION
  Report Type: Report from Study
  Country: US (occurrence: US)
  Receive Date: 20120731
  Receipt Date: 20131219
  Transmission Date: 20140711
  Serious: Yes (Hospitalization)
  Sender: FDA-Public Use
  Company Number: US-ACTELION-A-US2012-69120

PATIENT
  Age: 68 Year
  Sex: Female

DRUGS (2)
  1. VELETRI [Suspect]
     Indication: PULMONARY ARTERIAL HYPERTENSION
     Dosage: 16 NG/KG, PER MIN
     Route: 042
     Dates: start: 20110127
  2. SILDENAFIL [Concomitant]

REACTIONS (5)
  - Dyspnoea [Unknown]
  - Gastric antral vascular ectasia [Not Recovered/Not Resolved]
  - Hereditary haemorrhagic telangiectasia [Not Recovered/Not Resolved]
  - Haemorrhage [Unknown]
  - Packed red blood cell transfusion [Not Recovered/Not Resolved]
